FAERS Safety Report 8399620-1 (Version None)
Quarter: 2012Q1

REPORT INFORMATION
  Report Type: 
  Country: None (occurrence: None)
  Receive Date: 20120323
  Receipt Date: 20110818
  Transmission Date: 20120608
  Serious: Yes (Hospitalization, Other)
  Sender: FDA-Public Use
  Company Number: 163-21880-11072232

PATIENT
  Age: 90 Year
  Sex: Male
  Weight: 67.1324 kg

DRUGS (1)
  1. REVLIMID [Suspect]
     Indication: MULTIPLE MYELOMA
     Dosage: 20 MG, 2 IN 1 D, PO
     Route: 048
     Dates: start: 20110601, end: 20110701

REACTIONS (2)
  - DYSPNOEA [None]
  - FATIGUE [None]
